FAERS Safety Report 6781957-0 (Version None)
Quarter: 2010Q2

REPORT INFORMATION
  Report Type: 
  Country: None (occurrence: None)
  Receive Date: 20100615
  Receipt Date: 20100602
  Transmission Date: 20101027
  Serious: Yes (Death, Hospitalization)
  Sender: FDA-Public Use
  Company Number: FR-2010-1300

PATIENT
  Sex: Female

DRUGS (14)
  1. NAVELBINE [Suspect]
     Indication: BREAST CANCER
     Dosage: 40 MG IV
     Route: 042
     Dates: start: 20100329, end: 20100426
  2. FLUOROURACIL [Suspect]
     Indication: BREAST CANCER
     Dosage: 950 MG IV
     Route: 042
     Dates: start: 20100329, end: 20100424
  3. ACTISKENAN [Suspect]
     Indication: DRUG USE FOR UNKNOWN INDICATION
     Dates: start: 20100505
  4. INEXIUM. MFR: NOT SPECIFIED [Suspect]
     Indication: DRUG USE FOR UNKNOWN INDICATION
  5. DEROXAT. MFR: NOT SPECIFIED [Suspect]
     Indication: DRUG USE FOR UNKNOWN INDICATION
     Dates: start: 20100505
  6. IMOVANE. MFR: NOT SPECIFIED [Suspect]
     Indication: DRUG USE FOR UNKNOWN INDICATION
     Dates: start: 20100505
  7. ZOPHREN [Suspect]
     Dates: start: 20100505
  8. PRIMPERAN TAB [Suspect]
     Dates: start: 20100505
  9. SPASFON-LYOC [Concomitant]
  10. DAFALGAN. MFR: NOT SPECIFIED [Concomitant]
  11. LEXOMIL. MFR: NOT SPECIFIED [Concomitant]
  12. LOVENOX. MFR: NOT SPECIFIED [Concomitant]
  13. MEDROL. MFR: NOT SPECIFIED [Concomitant]
  14. FORLAX [Concomitant]

REACTIONS (8)
  - C-REACTIVE PROTEIN INCREASED [None]
  - INTERSTITIAL LUNG DISEASE [None]
  - LEUKOCYTOSIS [None]
  - NEUTROPENIA [None]
  - RESPIRATORY DISTRESS [None]
  - SHOCK [None]
  - TACHYCARDIA [None]
  - URINARY TRACT INFECTION [None]
